FAERS Safety Report 8819046 (Version 1)
Quarter: 2012Q4

REPORT INFORMATION
  Report Type: 
  Country: FR (occurrence: FR)
  Receive Date: 20121001
  Receipt Date: 20121001
  Transmission Date: 20130627
  Serious: Yes (Other)
  Sender: FDA-Public Use
  Company Number: FR-MERCK-1209FRA009861

PATIENT
  Age: 55 Year
  Sex: Female

DRUGS (7)
  1. EZETROL [Suspect]
     Dosage: 10 mg, qd
     Route: 048
     Dates: start: 20111010, end: 20120313
  2. ONGLYZA [Suspect]
     Dosage: 5 mg, qd
     Route: 048
     Dates: start: 20120106, end: 20120313
  3. SIMVASTATIN [Concomitant]
     Route: 048
  4. NOVO-NORM [Concomitant]
     Dosage: 2 mg, tid
     Route: 048
  5. METFORMIN [Concomitant]
     Dosage: 500 mg, bid
     Route: 048
  6. GLUCOR [Concomitant]
     Route: 048
  7. RAMIPRIL [Concomitant]
     Dosage: 5 mg, qd
     Route: 048

REACTIONS (1)
  - Hepatocellular injury [Recovered/Resolved]
